FAERS Safety Report 21593848 (Version 1)
Quarter: 2022Q4

REPORT INFORMATION
  Report Type: Spontaneous
  Country: US (occurrence: US)
  Receive Date: 20221115
  Receipt Date: 20221115
  Transmission Date: 20230113
  Serious: Yes (Other)
  Sender: FDA-Public Use
  Company Number: US-MALLINCKRODT-T202205916

PATIENT
  Sex: Female

DRUGS (1)
  1. UVADEX [Suspect]
     Active Substance: METHOXSALEN
     Indication: Graft versus host disease in gastrointestinal tract
     Dosage: UNK, THREE DAYS A WEEK, EXTRACORPOREAL
     Route: 050

REACTIONS (2)
  - Haematocrit decreased [Unknown]
  - Transfusion [Unknown]
